FAERS Safety Report 24243138 (Version 1)
Quarter: 2024Q3

REPORT INFORMATION
  Report Type: Spontaneous
  Country: ZA (occurrence: None)
  Receive Date: 20240823
  Receipt Date: 20240823
  Transmission Date: 20241017
  Serious: Yes (Hospitalization)
  Sender: ASTRAZENECA
  Company Number: 2024A187795

PATIENT
  Age: 73 Year
  Sex: Male

DRUGS (5)
  1. BUDESONIDE\FORMOTEROL [Suspect]
     Active Substance: BUDESONIDE\FORMOTEROL
     Indication: Asthma
     Dosage: 120 UG UNKNOWN
     Route: 055
  2. BUDESONIDE\FORMOTEROL [Suspect]
     Active Substance: BUDESONIDE\FORMOTEROL
     Indication: Chronic obstructive pulmonary disease
     Dosage: 120 UG UNKNOWN
     Route: 055
  3. RYALTRIS [Concomitant]
     Active Substance: MOMETASONE FUROATE MONOHYDRATE\OLOPATADINE HYDROCHLORIDE
  4. INDOMETHACIN [Concomitant]
     Active Substance: INDOMETHACIN
     Route: 055
  5. ASPIRIN [Concomitant]
     Active Substance: ASPIRIN
     Indication: Anticoagulant therapy
     Dosage: 100.0MG UNKNOWN
     Route: 048

REACTIONS (1)
  - Dialysis [Unknown]
